FAERS Safety Report 7816619-1 (Version None)
Quarter: 2011Q4

REPORT INFORMATION
  Report Type: 
  Country: None (occurrence: None)
  Receive Date: 20111017
  Receipt Date: 20111007
  Transmission Date: 20120403
  Serious: Yes (Hospitalization)
  Sender: FDA-Public Use
  Company Number: UA-UCBSA-009863

PATIENT
  Age: 44 Year
  Sex: Male
  Weight: 102 kg

DRUGS (7)
  1. CERTOLIZUMAB PEGOL [Suspect]
     Indication: CROHN'S DISEASE
     Dosage: 3 DOSES 200MG/VIAL
     Route: 058
     Dates: start: 20090416, end: 20090101
  2. MESALAMINE [Concomitant]
     Route: 048
     Dates: start: 20100516, end: 20100531
  3. MESALAMINE [Concomitant]
     Route: 048
     Dates: start: 20100601, end: 20100628
  4. CERTOLIZUMAB PEGOL [Suspect]
     Route: 058
     Dates: start: 20100519
  5. CERTOLIZUMAB PEGOL [Suspect]
     Route: 058
     Dates: start: 20090101, end: 20100401
  6. MESALAMINE [Concomitant]
     Indication: CROHN'S DISEASE
     Route: 048
     Dates: start: 20100310, end: 20100515
  7. LORISTA [Concomitant]
     Indication: HYPERTENSION
     Dosage: 1 TABLET DAILY
     Route: 048
     Dates: start: 20100310

REACTIONS (1)
  - PERIPROCTITIS [None]
